FAERS Safety Report 4763709-6 (Version None)
Quarter: 2005Q3

REPORT INFORMATION
  Report Type: 
  Country: None (occurrence: None)
  Receive Date: 20050908
  Receipt Date: 20050830
  Transmission Date: 20060218
  Serious: Yes (Death)
  Sender: FDA-Public Use
  Company Number: FR-GLAXOSMITHKLINE-B0392160A

PATIENT

DRUGS (1)
  1. LAMICTAL [Suspect]
     Indication: EPILEPSY
     Route: 065

REACTIONS (1)
  - DEATH [None]
